FAERS Safety Report 8200905-X (Version None)
Quarter: 2012Q1

REPORT INFORMATION
  Report Type: 
  Country: None (occurrence: None)
  Receive Date: 20120312
  Receipt Date: 20110725
  Transmission Date: 20120608
  Serious: No
  Sender: FDA-Public Use
  Company Number: US-ABBOTT-11P-163-0842100-00

PATIENT
  Sex: Female
  Weight: 89.892 kg

DRUGS (5)
  1. VITAMIN B-12 [Concomitant]
     Indication: PRODUCT USED FOR UNKNOWN INDICATION
  2. LUPRON DEPOT [Suspect]
     Indication: UTERINE LEIOMYOMA
     Dates: start: 20110401
  3. CALCIUM [Concomitant]
     Indication: MINERAL SUPPLEMENTATION
  4. VITAMIN B3 [Concomitant]
     Indication: PRODUCT USED FOR UNKNOWN INDICATION
  5. IRON [Concomitant]
     Indication: UTERINE LEIOMYOMA
     Dosage: PILL

REACTIONS (10)
  - IRRITABILITY [None]
  - PARAESTHESIA [None]
  - NIGHT SWEATS [None]
  - DRY SKIN [None]
  - PAIN [None]
  - LIBIDO DECREASED [None]
  - HOT FLUSH [None]
  - MOOD SWINGS [None]
  - ACNE [None]
  - ABDOMINAL PAIN [None]
